FAERS Safety Report 6679164-5 (Version None)
Quarter: 2010Q2

REPORT INFORMATION
  Report Type: 
  Country: None (occurrence: None)
  Receive Date: 20100402
  Receipt Date: 20100224
  Transmission Date: 20101027
  Serious: Yes (Hospitalization, Other)
  Sender: FDA-Public Use
  Company Number: 2009298350

PATIENT
  Age: 75 Year
  Sex: Male

DRUGS (1)
  1. ARGATROBAN [Suspect]
     Indication: HEPARIN-INDUCED THROMBOCYTOPENIA
     Dosage: 1 MCG/KG/MIN, INTRAVENOUS
     Route: 042
     Dates: start: 20091112, end: 20091115

REACTIONS (1)
  - INTERNATIONAL NORMALISED RATIO INCREASED [None]
